FAERS Safety Report 17552060 (Version 3)
Quarter: 2020Q2

REPORT INFORMATION
  Report Type: Spontaneous
  Country: RU (occurrence: RU)
  Receive Date: 20200317
  Receipt Date: 20200610
  Transmission Date: 20200713
  Serious: Yes (Other)
  Sender: FDA-Public Use
  Company Number: RU-ASTRAZENECA-2020SE34609

PATIENT
  Age: 52 Year
  Sex: Female

DRUGS (6)
  1. IRESSA [Suspect]
     Active Substance: GEFITINIB
     Indication: METASTASES TO LIVER
     Route: 048
     Dates: start: 20200117, end: 20200518
  2. IRESSA [Suspect]
     Active Substance: GEFITINIB
     Indication: METASTASES TO BONE
     Route: 048
     Dates: start: 20200117, end: 20200518
  3. IRESSA [Suspect]
     Active Substance: GEFITINIB
     Indication: NON-SMALL CELL LUNG CANCER
     Route: 048
     Dates: start: 20200117, end: 20200518
  4. IRESSA [Suspect]
     Active Substance: GEFITINIB
     Indication: EGFR GENE MUTATION
     Route: 048
     Dates: start: 20200117, end: 20200518
  5. OMEZ [Concomitant]
     Active Substance: OMEPRAZOLE
  6. XARELTO [Concomitant]
     Active Substance: RIVAROXABAN
     Indication: EMBOLIC STROKE
     Dates: start: 20200206

REACTIONS (8)
  - Red blood cell sedimentation rate increased [Unknown]
  - Rash pustular [Recovering/Resolving]
  - Malignant neoplasm progression [Unknown]
  - Diarrhoea [Not Recovered/Not Resolved]
  - Haemoglobin decreased [Not Recovered/Not Resolved]
  - White blood cell count increased [Unknown]
  - Drug ineffective [Not Recovered/Not Resolved]
  - Product label issue [Unknown]

NARRATIVE: CASE EVENT DATE: 20200216
